FAERS Safety Report 9259200 (Version 5)
Quarter: 2013Q2

REPORT INFORMATION
  Report Type: Report from Study
  Country: NO (occurrence: NO)
  Receive Date: 20130426
  Receipt Date: 20130605
  Transmission Date: 20140414
  Serious: Yes (Hospitalization)
  Sender: FDA-Public Use
  Company Number: NO-BAXTER-2013BAX015034

PATIENT
  Age: 77 Year
  Sex: Female
  Weight: 66 kg

DRUGS (17)
  1. SENDOXAN 1000 MG PULVER TIL INJEKSJONSV?SKE, OPPL?SNING [Suspect]
     Indication: NON-HODGKIN^S LYMPHOMA UNSPECIFIED HISTOLOGY INDOLENT
     Route: 042
     Dates: start: 20130404
  2. RITUXIMAB [Suspect]
     Indication: NON-HODGKIN^S LYMPHOMA UNSPECIFIED HISTOLOGY INDOLENT
     Route: 042
     Dates: start: 20130404
  3. PREDNISOLONE [Suspect]
     Indication: NON-HODGKIN^S LYMPHOMA UNSPECIFIED HISTOLOGY INDOLENT
     Route: 065
     Dates: start: 20121001
  4. PREDNISOLONE [Suspect]
     Route: 048
     Dates: start: 20130404
  5. PREDNISOLONE [Suspect]
     Route: 048
     Dates: start: 20130408
  6. VINCRISTINE SULFATE [Suspect]
     Indication: NON-HODGKIN^S LYMPHOMA UNSPECIFIED HISTOLOGY INDOLENT
     Route: 042
     Dates: start: 20130404
  7. RHUPH20 [Suspect]
     Indication: NON-HODGKIN^S LYMPHOMA UNSPECIFIED HISTOLOGY INDOLENT
     Route: 058
     Dates: start: 20130404
  8. RHUPH20 [Suspect]
     Route: 058
     Dates: start: 20130425, end: 20130506
  9. RITUXIMAB [Suspect]
     Indication: NON-HODGKIN^S LYMPHOMA UNSPECIFIED HISTOLOGY INDOLENT
     Route: 058
     Dates: start: 20130425, end: 20130506
  10. TELFAST [Concomitant]
     Indication: URTICARIA
     Route: 065
     Dates: start: 20121015
  11. CETIRIZIN [Concomitant]
     Indication: URTICARIA
     Route: 065
     Dates: start: 20121015
  12. BETNOVAT CREAM [Concomitant]
     Indication: URTICARIA
     Route: 065
     Dates: start: 20121122
  13. PREDNISOLONE [Concomitant]
     Indication: PRODUCT USED FOR UNKNOWN INDICATION
     Route: 065
  14. SOLU-CORTEF [Concomitant]
     Indication: INJECTION RELATED REACTION
     Route: 065
     Dates: start: 20130404, end: 20130404
  15. SOLU-CORTEF [Concomitant]
     Route: 065
     Dates: start: 20130425, end: 20130425
  16. CLINDAMYCIN PHOSPHATE [Concomitant]
     Indication: ERYSIPELAS
     Route: 065
     Dates: start: 20130504, end: 20130510
  17. CLINDAMYCIN HYDROCHLORIDE [Concomitant]
     Indication: ERYSIPELAS
     Route: 065
     Dates: start: 20130510, end: 20130514

REACTIONS (3)
  - Urinary tract infection [Recovered/Resolved]
  - Injection site reaction [Not Recovered/Not Resolved]
  - Erysipelas [Recovered/Resolved]
